FAERS Safety Report 24125505 (Version 1)
Quarter: 2024Q3

REPORT INFORMATION
  Report Type: Report from Study
  Country: ES (occurrence: ES)
  Receive Date: 20240723
  Receipt Date: 20240723
  Transmission Date: 20241017
  Serious: Yes (Hospitalization)
  Sender: ACCORD
  Company Number: None

PATIENT
  Age: 80 Year
  Sex: Male

DRUGS (6)
  1. ONDANSETRON [Suspect]
     Active Substance: ONDANSETRON
     Indication: Anaesthetic premedication
     Dosage: 8 MG, ONCE A DAY
     Dates: start: 20240521, end: 20240522
  2. METAMIZOL [Suspect]
     Active Substance: METAMIZOLE SODIUM
     Indication: Procedural pain
     Dates: start: 20240521, end: 20240524
  3. TEICOPLANIN [Suspect]
     Active Substance: TEICOPLANIN
     Indication: Prophylaxis
     Dosage: 400 MG, ONCE A DAY
     Dates: start: 20240521, end: 20240521
  4. CEFAZOLIN [Suspect]
     Active Substance: CEFAZOLIN
     Indication: Prophylaxis
     Dosage: 2 G, ONCE A DAY
     Dates: start: 20240521, end: 20240522
  5. ENOXAPARIN [Suspect]
     Active Substance: ENOXAPARIN
     Indication: Thrombosis prophylaxis
     Dosage: 4,000 IU, ONCE A DAY
     Dates: start: 20240521, end: 20240524
  6. TRAMADOL [Suspect]
     Active Substance: TRAMADOL\TRAMADOL HYDROCHLORIDE
     Indication: Procedural pain
     Dates: start: 20240521, end: 20240522

REACTIONS (1)
  - Generalised bullous fixed drug eruption [Recovered/Resolved]

NARRATIVE: CASE EVENT DATE: 20240522
